FAERS Safety Report 4763625-X (Version None)
Quarter: 2005Q3

REPORT INFORMATION
  Report Type: 
  Country: None (occurrence: None)
  Receive Date: 20050908
  Receipt Date: 20050621
  Transmission Date: 20060218
  Serious: Yes (Hospitalization)
  Sender: FDA-Public Use
  Company Number: 200511833JP

PATIENT
  Age: 63 Year
  Sex: Female
  Weight: 57.5 kg

DRUGS (7)
  1. AMARYL [Suspect]
     Indication: DIABETES MELLITUS INADEQUATE CONTROL
     Route: 048
     Dates: start: 20050609, end: 20050610
  2. IMIDAPRIL HYDROCHLORIDE [Concomitant]
     Route: 048
  3. AMLODIPINE BESYLATE [Concomitant]
     Route: 048
  4. DOXAZOSIN MESYLATE [Concomitant]
     Route: 048
  5. ATENOLOL [Concomitant]
     Route: 048
     Dates: start: 20050609
  6. VOGLIBOSE [Concomitant]
     Dates: end: 20050608
  7. CELIPROLOL HYDROCHLORIDE [Concomitant]
     Dates: end: 20050608

REACTIONS (6)
  - CONDITION AGGRAVATED [None]
  - NEPHROTIC SYNDROME [None]
  - OEDEMA [None]
  - OEDEMA PERIPHERAL [None]
  - PROTEINURIA [None]
  - SUPRAVENTRICULAR EXTRASYSTOLES [None]
